FAERS Safety Report 9466732 (Version 4)
Quarter: 2013Q3

REPORT INFORMATION
  Report Type: Report from Study
  Country: DE (occurrence: DE)
  Receive Date: 20130820
  Receipt Date: 20130902
  Transmission Date: 20140515
  Serious: Yes (Hospitalization)
  Sender: FDA-Public Use
  Company Number: DE-AMGEN-DEUNI2013057757

PATIENT
  Age: 77 Year
  Sex: Male

DRUGS (13)
  1. PANITUMUMAB [Suspect]
     Indication: COLORECTAL CANCER METASTATIC
     Dosage: 370 MG, UNK
     Route: 042
     Dates: start: 20130626
  2. 5-FLUOROURACIL [Suspect]
     Indication: COLORECTAL CANCER METASTATIC
     Dosage: UNK
     Route: 042
     Dates: start: 20130611
  3. OXALIPLATIN [Suspect]
     Indication: COLORECTAL CANCER METASTATIC
     Dosage: 140 MG, UNK
     Route: 042
     Dates: start: 20130611
  4. RESCUVOLIN [Concomitant]
     Indication: COLORECTAL CANCER METASTATIC
     Dosage: 350 MG, UNK
     Route: 042
     Dates: start: 20130611
  5. DEXAMETHASONE [Concomitant]
     Dosage: 16 MG, UNK
     Dates: start: 20130611
  6. ZOFRAN [Concomitant]
     Dosage: 8 MG, UNK
     Dates: start: 20130611
  7. RANITIC [Concomitant]
     Dosage: 50 MG, UNK
     Dates: start: 20130611
  8. TAVEGIL [Concomitant]
     Dosage: 2 MG, UNK
     Dates: start: 20130611
  9. ASS [Concomitant]
     Dosage: 100 MG, UNK
  10. SIMVASTATIN [Concomitant]
     Dosage: 20 MG, UNK
  11. RAMIPRIL [Concomitant]
     Dosage: 2.5 MG, UNK
  12. PANTOPRAZOL [Concomitant]
     Dosage: UNK
  13. KLINORIL [Concomitant]
     Dosage: UNK
     Dates: end: 20130814

REACTIONS (1)
  - Syncope [Recovered/Resolved]
